FAERS Safety Report 16812844 (Version 1)
Quarter: 2019Q3

REPORT INFORMATION
  Report Type: Spontaneous
  Country: GR (occurrence: GR)
  Receive Date: 20190916
  Receipt Date: 20190916
  Transmission Date: 20191005
  Serious: Yes (Other)
  Sender: FDA-Public Use
  Company Number: GR-JAZZ-2019-GR-008765

PATIENT
  Age: 19 Month
  Sex: Female
  Weight: 9.98 kg

DRUGS (1)
  1. ASPARAGINASE [Suspect]
     Active Substance: ASPARAGINASE
     Indication: ACUTE LYMPHOCYTIC LEUKAEMIA
     Dosage: 100 IU ASPARAGINASE TEST DOSE
     Route: 058
     Dates: start: 20190409, end: 20190409

REACTIONS (1)
  - Injection site hypersensitivity [Recovered/Resolved]

NARRATIVE: CASE EVENT DATE: 20190409
